FAERS Safety Report 7520433-4 (Version None)
Quarter: 2011Q2

REPORT INFORMATION
  Report Type: 
  Country: None (occurrence: None)
  Receive Date: 20110602
  Receipt Date: 20110531
  Transmission Date: 20111010
  Serious: Yes (Hospitalization)
  Sender: FDA-Public Use
  Company Number: US-MERCK-1102USA02515

PATIENT
  Age: 83 Year
  Sex: Female

DRUGS (3)
  1. WARFARIN SODIUM [Suspect]
     Route: 065
     Dates: start: 20110131
  2. AVANDIA [Suspect]
     Route: 065
     Dates: start: 20070901
  3. JANUVIA [Suspect]
     Indication: DIABETES MELLITUS
     Route: 048
     Dates: start: 20070901

REACTIONS (6)
  - CARDIAC FIBRILLATION [None]
  - PRURITUS [None]
  - MALAISE [None]
  - EPISTAXIS [None]
  - BLISTER [None]
  - BRONCHIAL DISORDER [None]
